FAERS Safety Report 6619727-6 (Version None)
Quarter: 2010Q1

REPORT INFORMATION
  Report Type: 
  Country: None (occurrence: None)
  Receive Date: 20100309
  Receipt Date: 20100224
  Transmission Date: 20100710
  Serious: Yes (Hospitalization, Other)
  Sender: FDA-Public Use
  Company Number: PHHY2009IE49645

PATIENT
  Sex: Female

DRUGS (5)
  1. CLOZARIL [Suspect]
     Indication: SCHIZOPHRENIA
     Dosage: 625 MG, UNK
     Dates: start: 20000717
  2. ELTROXIN [Concomitant]
     Dosage: UNK
     Route: 048
  3. CITALOPRAM HYDROBROMIDE [Concomitant]
     Dosage: 20 MG, UNK
     Route: 048
  4. ZOTON [Concomitant]
     Dosage: 30 MG, UNK
     Route: 048
  5. GALFER [Concomitant]
     Dosage: 1 DF, UNK

REACTIONS (8)
  - ABDOMINAL PAIN [None]
  - ABSCESS [None]
  - ACTIVATED PARTIAL THROMBOPLASTIN TIME SHORTENED [None]
  - ANISOCYTOSIS [None]
  - DIABETES MELLITUS [None]
  - HAEMOGLOBIN DECREASED [None]
  - LAPAROTOMY [None]
  - RED BLOOD CELL SEDIMENTATION RATE INCREASED [None]
